FAERS Safety Report 10132543 (Version 1)
Quarter: 2014Q2

REPORT INFORMATION
  Report Type: Spontaneous
  Country: US (occurrence: US)
  Receive Date: 20140428
  Receipt Date: 20140428
  Transmission Date: 20141212
  Serious: No
  Sender: FDA-Public Use
  Company Number: US-MALLINCKRODT-T201303419

PATIENT
  Sex: Male
  Weight: 81.63 kg

DRUGS (3)
  1. HYDROCODONE/ACETAMINOPHEN [Suspect]
     Indication: PAIN
     Dosage: Q 4-6 HRS
     Route: 048
  2. VITAMIN B [Concomitant]
     Indication: PRODUCT USED FOR UNKNOWN INDICATION
  3. POTASSIUM [Concomitant]
     Indication: PRODUCT USED FOR UNKNOWN INDICATION
     Dosage: EVERY 4-6 HOURS

REACTIONS (3)
  - Pruritus [Not Recovered/Not Resolved]
  - Dizziness [Not Recovered/Not Resolved]
  - Restlessness [Not Recovered/Not Resolved]
